FAERS Safety Report 21851794 (Version 1)
Quarter: 2023Q1

REPORT INFORMATION
  Report Type: Spontaneous
  Country: US (occurrence: US)
  Receive Date: 20230112
  Receipt Date: 20230112
  Transmission Date: 20230417
  Serious: Yes (Other)
  Sender: FDA-Public Use
  Company Number: US-JNJFOC-20230108914

PATIENT
  Age: 67 Year
  Sex: Male

DRUGS (2)
  1. ACETAMINOPHEN [Suspect]
     Active Substance: ACETAMINOPHEN
     Indication: Chest pain
     Dosage: 1 TO 3 G/D FOR 3 DAYS (SHORT-TERM INGESTION OF THERAPEUTIC DOSES)
     Route: 065
  2. ACETAMINOPHEN [Suspect]
     Active Substance: ACETAMINOPHEN
     Dosage: CONTINUING ACETAMINOPHEN INGESTION
     Route: 065

REACTIONS (2)
  - Drug-induced liver injury [Unknown]
  - Nephropathy toxic [Unknown]
